FAERS Safety Report 22081940 (Version 1)
Quarter: 2023Q1

REPORT INFORMATION
  Report Type: Report from Study
  Country: US (occurrence: US)
  Receive Date: 20230310
  Receipt Date: 20230310
  Transmission Date: 20230418
  Serious: No
  Sender: FDA-Public Use
  Company Number: US-BIOVITRUM-2023-US-00185

PATIENT
  Age: 68 Year
  Sex: Female

DRUGS (1)
  1. KINERET [Suspect]
     Active Substance: ANAKINRA
     Indication: Rheumatoid arthritis
     Route: 058
     Dates: start: 20210326

REACTIONS (7)
  - Injection site pain [Unknown]
  - Food allergy [Unknown]
  - Seasonal allergy [Unknown]
  - Blood cholesterol decreased [Unknown]
  - Sinusitis [Unknown]
  - Foot deformity [Unknown]
  - Epistaxis [Unknown]
